FAERS Safety Report 13088832 (Version 1)
Quarter: 2017Q1

REPORT INFORMATION
  Report Type: Spontaneous
  Country: US (occurrence: US)
  Receive Date: 20170105
  Receipt Date: 20170105
  Transmission Date: 20170428
  Serious: No
  Sender: FDA-Public Use
  Company Number: None

PATIENT
  Age: 86 Year
  Sex: Male
  Weight: 95.34 kg

DRUGS (13)
  1. PLAVIX [Concomitant]
     Active Substance: CLOPIDOGREL BISULFATE
  2. MULTIVITAMINS W/MINERALS [Concomitant]
     Active Substance: MINERALS\VITAMINS
  3. NEURONTIN [Concomitant]
     Active Substance: GABAPENTIN
  4. CIPRO [Suspect]
     Active Substance: CIPROFLOXACIN HYDROCHLORIDE
     Indication: URINARY TRACT INFECTION PSEUDOMONAL
  5. L-THEANINE [Concomitant]
     Active Substance: DIETARY SUPPLEMENT
  6. BOSWELLIA [Concomitant]
  7. PROSCAR [Concomitant]
     Active Substance: FINASTERIDE
  8. RAMIPRIL. [Concomitant]
     Active Substance: RAMIPRIL
  9. OMEGA 3 FISH OIL [Concomitant]
     Active Substance: FISH OIL\OMEGA-3 FATTY ACIDS
  10. LEVAQUIN [Suspect]
     Active Substance: LEVOFLOXACIN
  11. I-LIPOIC ACID [Concomitant]
  12. OMAX [Concomitant]
  13. VIT B 12 METHYLCOBALAMIN [Concomitant]

REACTIONS (2)
  - Therapy non-responder [None]
  - Feeling abnormal [None]

NARRATIVE: CASE EVENT DATE: 201512
